FAERS Safety Report 5672529-X (Version None)
Quarter: 2008Q1

REPORT INFORMATION
  Report Type: 
  Country: None (occurrence: None)
  Receive Date: 20080319
  Receipt Date: 20080310
  Transmission Date: 20080703
  Serious: Yes (Other)
  Sender: FDA-Public Use
  Company Number: US-ROCHE-552308

PATIENT
  Age: 61 Year
  Sex: Female
  Weight: 56.7 kg

DRUGS (4)
  1. BONIVA [Suspect]
     Indication: OSTEOPENIA
     Dosage: PATIENT REPORTED HAD BEEN RECEIVING THERAPY FOR TWO YEARS.
     Route: 065
     Dates: start: 20060101
  2. COSOPT [Concomitant]
     Indication: PROPHYLAXIS
     Dosage: FORMULATION REPORTED AS ^EYE DROPS^
  3. ALPHAGAN P [Concomitant]
     Indication: PROPHYLAXIS
     Dosage: FORMULATION REPORTED AS ^EYE DROPS^
  4. COMBIPATCH [Concomitant]
     Indication: HORMONE REPLACEMENT THERAPY
     Route: 062

REACTIONS (1)
  - NORMAL TENSION GLAUCOMA [None]
